FAERS Safety Report 7968056-7 (Version None)
Quarter: 2011Q4

REPORT INFORMATION
  Report Type: 
  Country: None (occurrence: None)
  Receive Date: 20111121
  Receipt Date: 20110819
  Transmission Date: 20120403
  Serious: No
  Sender: FDA-Public Use
  Company Number: 1000023042

PATIENT
  Age: 76 Year
  Sex: Female

DRUGS (11)
  1. OMEPRAZOLE [Concomitant]
  2. NEURONTIN [Suspect]
     Dosage: 100 MG
  3. VIIBRYD [Suspect]
     Indication: BIPOLAR DISORDER
     Dosage: 10 MG (10 MG, 1 IN 1 D), ORAL
     Route: 048
     Dates: start: 20110817
  4. SEROQUEL [Suspect]
     Indication: BIPOLAR DISORDER
     Dosage: 75 MG
  5. SIMVASTATIN [Suspect]
     Indication: BLOOD CHOLESTEROL INCREASED
  6. LEVOTHYROXINE (LEVOTHYROXINE SODIUM) (LEVOTHYROXINE SODIUM) [Concomitant]
  7. TOPROL-XL [Suspect]
     Indication: HYPERTENSION
  8. BENAZEPRIL HYDROCHLORIDE [Concomitant]
  9. ASPIRIN [Concomitant]
  10. AMLODIPINE [Concomitant]
  11. MELOXICAM [Concomitant]

REACTIONS (2)
  - SOMNOLENCE [None]
  - FEELING ABNORMAL [None]
